FAERS Safety Report 16723862 (Version 1)
Quarter: 2019Q3

REPORT INFORMATION
  Report Type: Spontaneous
  Country: RO (occurrence: RO)
  Receive Date: 20190821
  Receipt Date: 20190821
  Transmission Date: 20191005
  Serious: Yes (Life-Threatening, Other)
  Sender: FDA-Public Use
  Company Number: RO-TEVA-757035USA

PATIENT
  Sex: Female
  Weight: 58 kg

DRUGS (1)
  1. POSTINOR [Suspect]
     Active Substance: LEVONORGESTREL
     Indication: CONTRACEPTION
     Dosage: 1 TABLET EVERY 12 HOURS
     Route: 048
     Dates: start: 20170124, end: 20170125

REACTIONS (3)
  - Uterine haemorrhage [Recovering/Resolving]
  - Drug ineffective [Recovering/Resolving]
  - Maternal exposure during pregnancy [Recovering/Resolving]
